FAERS Safety Report 5745318-5 (Version None)
Quarter: 2008Q2

REPORT INFORMATION
  Report Type: 
  Country: None (occurrence: None)
  Receive Date: 20080521
  Receipt Date: 20080512
  Transmission Date: 20081010
  Serious: Yes (Hospitalization)
  Sender: FDA-Public Use
  Company Number: JP-JNJFOC-20070503462

PATIENT
  Sex: Female
  Weight: 43 kg

DRUGS (16)
  1. REMICADE [Suspect]
     Dosage: 11TH INFUSION (WEEK 70)
     Route: 042
  2. REMICADE [Suspect]
     Dosage: 10TH DOSE
     Route: 042
  3. REMICADE [Suspect]
     Dosage: 9TH DOSE
     Route: 042
  4. REMICADE [Suspect]
     Dosage: 8TH DOSE
     Route: 042
  5. REMICADE [Suspect]
     Dosage: 7TH DOSE
     Route: 042
  6. REMICADE [Suspect]
     Dosage: 6TH DOSE
     Route: 042
  7. REMICADE [Suspect]
     Dosage: 5TH DOSE
     Route: 042
  8. REMICADE [Suspect]
     Dosage: 4TH DOSE
     Route: 042
  9. REMICADE [Suspect]
     Dosage: 3RD DOSE
     Route: 042
  10. REMICADE [Suspect]
     Dosage: 2ND DOSE
     Route: 042
  11. REMICADE [Suspect]
     Indication: RHEUMATOID ARTHRITIS
     Dosage: 1ST DOSE
     Route: 042
  12. RHEUMATREX [Suspect]
     Indication: RHEUMATOID ARTHRITIS
     Route: 048
  13. PREDNISOLONE [Suspect]
     Indication: RHEUMATOID ARTHRITIS
     Route: 048
  14. FOLIAMIN [Concomitant]
     Route: 048
  15. MOBIC [Concomitant]
     Indication: RHEUMATOID ARTHRITIS
     Route: 048
  16. PREDONINE [Concomitant]
     Indication: RHEUMATOID ARTHRITIS

REACTIONS (1)
  - LYMPHOMA [None]
